FAERS Safety Report 8936059 (Version 2)
Quarter: 2013Q1

REPORT INFORMATION
  Report Type: Report from Study
  Country: CA (occurrence: CA)
  Receive Date: 20121130
  Receipt Date: 20130116
  Transmission Date: 20140127
  Serious: Yes (Hospitalization)
  Sender: FDA-Public Use
  Company Number: CA-PFIZER INC-2012287927

PATIENT
  Age: 51 Year
  Sex: Male
  Weight: 95.7 kg

DRUGS (12)
  1. BLINDED NO SUBJECT DRUG [Suspect]
     Indication: SMOKING CESSATION THERAPY
     Dosage: UNK, 1X/DAY
     Route: 048
     Dates: start: 20120830, end: 20120901
  2. BLINDED PLACEBO [Suspect]
     Indication: SMOKING CESSATION THERAPY
     Dosage: UNK, 1X/DAY
     Route: 048
     Dates: start: 20120830, end: 20120901
  3. BLINDED VARENICLINE TARTRATE [Suspect]
     Indication: SMOKING CESSATION THERAPY
     Dosage: UNK, 1X/DAY
     Route: 048
     Dates: start: 20120830, end: 20120901
  4. BLINDED NO SUBJECT DRUG [Suspect]
     Dosage: UNK, 2X/DAY
     Route: 048
     Dates: start: 20120902
  5. BLINDED PLACEBO [Suspect]
     Dosage: UNK, 2X/DAY
     Route: 048
     Dates: start: 20120902
  6. BLINDED VARENICLINE TARTRATE [Suspect]
     Dosage: UNK, 2X/DAY
     Route: 048
     Dates: start: 20120902
  7. LIPITOR [Suspect]
     Indication: ACUTE CORONARY SYNDROME
     Dosage: 80 MG, 1X/DAY AT BEDTIME
     Route: 048
     Dates: start: 20120828, end: 20121029
  8. CARVEDILOL [Concomitant]
     Indication: ACUTE CORONARY SYNDROME
     Dosage: UNK
     Route: 048
     Dates: start: 20120828
  9. LISINOPRIL [Concomitant]
     Indication: ACUTE CORONARY SYNDROME
     Dosage: UNK
     Route: 048
     Dates: start: 20120828
  10. ASPIRIN [Concomitant]
     Indication: ACUTE CORONARY SYNDROME
     Dosage: UNK
     Route: 048
     Dates: start: 20120828
  11. NITROGLYCERIN [Concomitant]
     Indication: ACUTE CORONARY SYNDROME
     Dosage: UNK
     Route: 060
     Dates: start: 20120828
  12. METFORMIN [Concomitant]
     Indication: DIABETES MELLITUS
     Dosage: UNK
     Route: 048

REACTIONS (1)
  - Non-cardiac chest pain [Recovered/Resolved]
